FAERS Safety Report 5145101-8 (Version None)
Quarter: 2006Q4

REPORT INFORMATION
  Report Type: 
  Country: None (occurrence: None)
  Receive Date: 20061107
  Receipt Date: 20060421
  Transmission Date: 20070319
  Serious: Yes (Hospitalization)
  Sender: FDA-Public Use
  Company Number: US-ROCHE-445467

PATIENT
  Sex: Female
  Weight: 1.5 kg

DRUGS (4)
  1. ACCUTANE [Suspect]
     Indication: ACNE
     Dates: start: 19980510, end: 19981020
  2. FOLIC ACID [Concomitant]
  3. NIFEDIPINE [Concomitant]
     Indication: ILL-DEFINED DISORDER
     Dosage: WAS REPORTED AS NIFEDEPINE. INDICATION WAS REPORTED AS IRREG. CONTRACTIONS.
     Dates: start: 20050630
  4. DEXAMETHASONE TAB [Concomitant]
     Dates: start: 20050630

REACTIONS (14)
  - CERVIX DISORDER [None]
  - DRUG EXPOSURE DURING PREGNANCY [None]
  - GESTATIONAL DIABETES [None]
  - INTUBATION [None]
  - MALIGNANT HISTIOCYTOSIS [None]
  - MECONIUM ABNORMAL [None]
  - MUSCLE SPASMS [None]
  - NORMAL NEWBORN [None]
  - PLACENTAL DISORDER [None]
  - PREGNANCY [None]
  - PREMATURE LABOUR [None]
  - PREMATURE RUPTURE OF MEMBRANES [None]
  - THREATENED LABOUR [None]
  - TWIN PREGNANCY [None]
